FAERS Safety Report 24251253 (Version 5)
Quarter: 2024Q4

REPORT INFORMATION
  Report Type: Report from Study
  Country: MX (occurrence: MX)
  Receive Date: 20240826
  Receipt Date: 20241217
  Transmission Date: 20250114
  Serious: Yes (Hospitalization, Other)
  Sender: ROCHE
  Company Number: MX-ROCHE-10000061562

PATIENT
  Age: 45 Year
  Sex: Female
  Weight: 80 kg

DRUGS (5)
  1. OCREVUS [Suspect]
     Active Substance: OCRELIZUMAB
     Indication: Multiple sclerosis
     Route: 042
     Dates: start: 202303
  2. OCREVUS [Suspect]
     Active Substance: OCRELIZUMAB
     Route: 042
     Dates: start: 20231101
  3. PREGABALIN [Concomitant]
     Active Substance: PREGABALIN
     Dosage: DOSE AND FREQUENCY WERE NOT REPORTED
  4. CARBAMAZEPINE [Concomitant]
     Active Substance: CARBAMAZEPINE
     Dosage: DOSE AND FREQUENCY WERE NOT REPORTED
  5. ETORICOXIB [Concomitant]
     Active Substance: ETORICOXIB
     Dosage: DOSE AND FREQUENCY WERE NOT REPORTED

REACTIONS (5)
  - Pneumonia [Recovering/Resolving]
  - Pneumonia [Recovering/Resolving]
  - Pneumonia [Unknown]
  - Immunoglobulins decreased [Unknown]
  - Lymphocyte count decreased [Unknown]

NARRATIVE: CASE EVENT DATE: 20230401
